FAERS Safety Report 8072397-5 (Version None)
Quarter: 2012Q1

REPORT INFORMATION
  Report Type: 
  Country: None (occurrence: None)
  Receive Date: 20120126
  Receipt Date: 20120117
  Transmission Date: 20120608
  Serious: Yes (Other)
  Sender: FDA-Public Use
  Company Number: US-BAYER-2012-007890

PATIENT
  Age: 38 Year
  Sex: Female
  Weight: 114 kg

DRUGS (3)
  1. SYNTHROID [Concomitant]
  2. EFFEXOR XR [Concomitant]
     Dosage: 150 MG, UNK
  3. YAZ [Suspect]
     Route: 048

REACTIONS (1)
  - DEEP VEIN THROMBOSIS [None]
